FAERS Safety Report 8458717-8 (Version None)
Quarter: 2012Q2

REPORT INFORMATION
  Report Type: 
  Country: None (occurrence: None)
  Receive Date: 20120622
  Receipt Date: 20120614
  Transmission Date: 20120825
  Serious: Yes (Death, Life-Threatening, Hospitalization)
  Sender: FDA-Public Use
  Company Number: PH-GENZYME-CERZ-1002509

PATIENT
  Sex: Female
  Weight: 14.7 kg

DRUGS (1)
  1. CEREZYME [Suspect]
     Indication: GAUCHER'S DISEASE
     Dosage: 30 U/KG, UNK
     Route: 042
     Dates: start: 20081215, end: 20120428

REACTIONS (3)
  - CONVULSION [None]
  - PNEUMONIA [None]
  - APNOEA [None]
